FAERS Safety Report 25192618 (Version 2)
Quarter: 2025Q2

REPORT INFORMATION
  Report Type: Spontaneous
  Country: IE (occurrence: IE)
  Receive Date: 20250414
  Receipt Date: 20250421
  Transmission Date: 20250717
  Serious: Yes (Other)
  Sender: GILEAD
  Company Number: IE-GILEAD-2025-0710106

PATIENT
  Sex: Female

DRUGS (1)
  1. ODEFSEY [Suspect]
     Active Substance: EMTRICITABINE\RILPIVIRINE HYDROCHLORIDE\TENOFOVIR ALAFENAMIDE FUMARATE
     Indication: Product used for unknown indication
     Route: 065

REACTIONS (4)
  - Osteonecrosis [Unknown]
  - Peripheral swelling [Recovering/Resolving]
  - Musculoskeletal stiffness [Unknown]
  - Nodule [Unknown]
